FAERS Safety Report 21355198 (Version 2)
Quarter: 2022Q4

REPORT INFORMATION
  Report Type: Spontaneous
  Country: US (occurrence: US)
  Receive Date: 20220920
  Receipt Date: 20221019
  Transmission Date: 20230113
  Serious: Yes (Hospitalization)
  Sender: FDA-Public Use
  Company Number: US-RIGEL PHARMACEUTICALS, INC.-2022FOS000729

PATIENT
  Sex: Female
  Weight: 52.608 kg

DRUGS (2)
  1. TAVALISSE [Suspect]
     Active Substance: FOSTAMATINIB
     Indication: Immune thrombocytopenia
     Dosage: 100 MG, QD
     Route: 048
  2. TAVALISSE [Suspect]
     Active Substance: FOSTAMATINIB
     Dosage: 100 MG, ONCE EVERY OTHER DAY
     Route: 048
     Dates: start: 20220324

REACTIONS (12)
  - Platelet count decreased [Unknown]
  - Dry skin [Unknown]
  - Dry throat [Unknown]
  - Dysphagia [Unknown]
  - Abdominal distension [Unknown]
  - Memory impairment [Unknown]
  - Confusional state [Unknown]
  - Platelet count increased [Unknown]
  - Feeling hot [Unknown]
  - Stress at work [Unknown]
  - Product prescribing issue [Unknown]
  - Fatigue [Unknown]

NARRATIVE: CASE EVENT DATE: 20220101
